FAERS Safety Report 25109959 (Version 1)
Quarter: 2025Q1

REPORT INFORMATION
  Report Type: Spontaneous
  Country: US (occurrence: US)
  Receive Date: 20250324
  Receipt Date: 20250324
  Transmission Date: 20250409
  Serious: Yes (Hospitalization, Other)
  Sender: EMCURE PHARMACEUTICALS LTD
  Company Number: US-AVET LIFESCIENCES LTD-2025-AVET-000075

PATIENT
  Age: 24 Year
  Sex: Female

DRUGS (2)
  1. METFORMIN [Suspect]
     Active Substance: METFORMIN HYDROCHLORIDE
     Route: 048
  2. DRONABINOL [Concomitant]
     Active Substance: DRONABINOL
     Route: 065

REACTIONS (4)
  - Intentional self-injury [Unknown]
  - Overdose [Unknown]
  - Hypoglycaemia [Unknown]
  - Confusional state [Unknown]
